FAERS Safety Report 5988651-4 (Version None)
Quarter: 2009Q1

REPORT INFORMATION
  Report Type: 
  Country: None (occurrence: None)
  Receive Date: 20081208
  Receipt Date: 20081208
  Transmission Date: 20090719
  Serious: Yes (Other)
  Sender: FDA-Public Use
  Company Number: None

PATIENT
  Age: 53 Year
  Sex: Female
  Weight: 74.8435 kg

DRUGS (1)
  1. PROAIR HFA [Suspect]
     Indication: ASTHMA
     Dosage: 2 PUFFS 4 TIMES DAILY
     Route: 055
     Dates: start: 20081124

REACTIONS (2)
  - PRODUCT QUALITY ISSUE [None]
  - THERAPY CESSATION [None]
